FAERS Safety Report 23281669 (Version 1)
Quarter: 2023Q4

REPORT INFORMATION
  Report Type: Other
  Country: US (occurrence: None)
  Receive Date: 20231211
  Receipt Date: 20231211
  Transmission Date: 20240110
  Serious: Yes (Other)
  Sender: FDA-Public Use
  Company Number: US-ROCHE-3332275

PATIENT
  Age: 51 Year
  Sex: Female
  Weight: 67.192 kg

DRUGS (19)
  1. OCREVUS [Suspect]
     Active Substance: OCRELIZUMAB
     Indication: Relapsing-remitting multiple sclerosis
     Dosage: DATE OF TREATMENT: 2/10/2021 ,2/24/2021., 8/16/2021, 2/14/2022, 9/14/2022
     Route: 042
     Dates: start: 202102
  2. BACLOFEN [Concomitant]
     Active Substance: BACLOFEN
  3. FLONASE [Concomitant]
     Active Substance: FLUTICASONE PROPIONATE
  4. IBUPROFEN [Concomitant]
     Active Substance: IBUPROFEN
  5. LEXAPRO [Concomitant]
     Active Substance: ESCITALOPRAM OXALATE
  6. TYLENOL [Concomitant]
     Active Substance: ACETAMINOPHEN
  7. FOLIC ACID [Concomitant]
     Active Substance: FOLIC ACID
  8. METHOTREXATE [Concomitant]
     Active Substance: METHOTREXATE
  9. CELEBREX [Concomitant]
     Active Substance: CELECOXIB
  10. CLOBETASOL [Concomitant]
     Active Substance: CLOBETASOL
  11. DICLOFENAC [Concomitant]
     Active Substance: DICLOFENAC
  12. ASPIRIN [Concomitant]
     Active Substance: ASPIRIN
  13. HYDROCODONE [Concomitant]
     Active Substance: HYDROCODONE
  14. HYDROCORTISONE [Concomitant]
     Active Substance: HYDROCORTISONE
  15. LYRICA [Concomitant]
     Active Substance: PREGABALIN
  16. SIMVASTATIN [Concomitant]
     Active Substance: SIMVASTATIN
  17. TRIAMCINOLONE [Concomitant]
     Active Substance: TRIAMCINOLONE
  18. VENTOLIN [Concomitant]
     Active Substance: ALBUTEROL SULFATE
  19. VITAMIN D3 [Concomitant]
     Active Substance: CHOLECALCIFEROL

REACTIONS (8)
  - Systemic lupus erythematosus [Not Recovered/Not Resolved]
  - Multiple sclerosis [Unknown]
  - Intervertebral disc protrusion [Unknown]
  - Spondylitis [Unknown]
  - Rheumatoid arthritis [Not Recovered/Not Resolved]
  - Immunosuppression [Not Recovered/Not Resolved]
  - COVID-19 [Recovered/Resolved]
  - Blood cholesterol increased [Recovering/Resolving]

NARRATIVE: CASE EVENT DATE: 20220101
